FAERS Safety Report 5959018-X (Version None)
Quarter: 2008Q4

REPORT INFORMATION
  Report Type: 
  Country: None (occurrence: None)
  Receive Date: 20081117
  Receipt Date: 20080624
  Transmission Date: 20090506
  Serious: Yes (Hospitalization)
  Sender: FDA-Public Use
  Company Number: GXBR2008US01383

PATIENT
  Age: 76 Year
  Sex: Female

DRUGS (1)
  1. FUROSEMIDE [Suspect]
     Indication: CARDIAC FAILURE CONGESTIVE
     Dosage: 40 MG, QD, ORAL
     Route: 048
     Dates: start: 20080609

REACTIONS (1)
  - DRUG INEFFECTIVE [None]
